FAERS Safety Report 8219823-6 (Version None)
Quarter: 2012Q1

REPORT INFORMATION
  Report Type: 
  Country: None (occurrence: None)
  Receive Date: 20120319
  Receipt Date: 20120312
  Transmission Date: 20120608
  Serious: Yes (Other)
  Sender: FDA-Public Use
  Company Number: US-PFIZER INC-2012062232

PATIENT
  Age: 87 Year
  Sex: Male

DRUGS (2)
  1. DEXAMETHASONE SODIUM PHOSPHATE [Suspect]
     Indication: MULTIPLE MYELOMA
     Dosage: UNK
  2. LENALIDOMIDE [Suspect]
     Indication: MULTIPLE MYELOMA

REACTIONS (1)
  - BLOOD THYROID STIMULATING HORMONE INCREASED [None]
